FAERS Safety Report 16085441 (Version 2)
Quarter: 2019Q2

REPORT INFORMATION
  Report Type: Spontaneous
  Country: US (occurrence: US)
  Receive Date: 20190318
  Receipt Date: 20190409
  Transmission Date: 20190711
  Serious: Yes (Other)
  Sender: FDA-Public Use
  Company Number: US-HORIZON-PEN-0288-2019

PATIENT
  Age: 54 Year
  Sex: Female

DRUGS (6)
  1. HYDROXYZINE HCL [Concomitant]
     Active Substance: HYDROXYZINE HYDROCHLORIDE
  2. PENNSAID [Suspect]
     Active Substance: DICLOFENAC SODIUM
     Indication: TENDON RUPTURE
     Dosage: 2 APPLICATIONS 24 HOURS APART THEN BID FOR 2 DAYS
     Dates: start: 20190228, end: 20190309
  3. NAPROXEN. [Concomitant]
     Active Substance: NAPROXEN
  4. BETAMETHASONE. [Concomitant]
     Active Substance: BETAMETHASONE
     Dosage: PRN
  5. CLIMARA [Concomitant]
     Active Substance: ESTRADIOL
  6. VALTREX [Concomitant]
     Active Substance: VALACYCLOVIR HYDROCHLORIDE
     Dosage: PRN

REACTIONS (11)
  - Application site inflammation [Not Recovered/Not Resolved]
  - Application site dryness [Recovered/Resolved]
  - Application site pain [Not Recovered/Not Resolved]
  - Application site scar [Not Recovered/Not Resolved]
  - Condition aggravated [Not Recovered/Not Resolved]
  - Application site erythema [Not Recovered/Not Resolved]
  - Application site pruritus [Not Recovered/Not Resolved]
  - Off label use [Not Recovered/Not Resolved]
  - Chemical burn [Not Recovered/Not Resolved]
  - Application site discolouration [Not Recovered/Not Resolved]
  - Herpes zoster [Not Recovered/Not Resolved]

NARRATIVE: CASE EVENT DATE: 20190301
